FAERS Safety Report 14974226 (Version 2)
Quarter: 2018Q2

REPORT INFORMATION
  Report Type: Spontaneous
  Country: CN (occurrence: CN)
  Receive Date: 20180605
  Receipt Date: 20180607
  Transmission Date: 20180711
  Serious: Yes (Other)
  Sender: FDA-Public Use
  Company Number: CN-DSJP-DSJ-2018-121814AA

PATIENT

DRUGS (5)
  1. SODIUM BICARBONATE. [Concomitant]
     Active Substance: SODIUM BICARBONATE
     Indication: URINE ALKALINISATION THERAPY
     Dosage: 1 G, TID
     Route: 065
     Dates: start: 20180326
  2. DICLOFENAC [Suspect]
     Active Substance: DICLOFENAC
     Indication: PAIN
     Dosage: 0.1 G, QD
     Route: 048
     Dates: start: 20180326
  3. LOXOPROFEN [Concomitant]
     Active Substance: LOXOPROFEN
     Indication: INFLAMMATION
  4. OLMESARTAN MEDOXOMIL; HYDROCHLOROTHIAZIDE [Suspect]
     Active Substance: HYDROCHLOROTHIAZIDE\OLMESARTAN MEDOXOMIL
     Indication: DRUG THERAPY
     Dosage: 20/12.5 MG, QD
     Route: 048
     Dates: start: 20180322, end: 20180325
  5. LOXOPROFEN [Concomitant]
     Active Substance: LOXOPROFEN
     Indication: PAIN
     Dosage: 50 MG, UNK
     Route: 065
     Dates: start: 20180326

REACTIONS (4)
  - Renal impairment [Recovered/Resolved]
  - Hyperuricaemia [Recovering/Resolving]
  - Blood uric acid increased [Recovering/Resolving]
  - Pain in extremity [Recovering/Resolving]

NARRATIVE: CASE EVENT DATE: 20180324
